FAERS Safety Report 7580266-X (Version None)
Quarter: 2011Q2

REPORT INFORMATION
  Report Type: 
  Country: None (occurrence: None)
  Receive Date: 20110629
  Receipt Date: 20110621
  Transmission Date: 20111010
  Serious: Yes (Hospitalization)
  Sender: FDA-Public Use
  Company Number: US-BAXTER-2011BH020854

PATIENT
  Age: 64 Year
  Sex: Male

DRUGS (2)
  1. ASPIRIN [Concomitant]
     Indication: ANTIPLATELET THERAPY
     Route: 065
  2. HEPARIN SODIUM INJECTION [Suspect]
     Indication: THROMBOSIS PROPHYLAXIS
     Route: 042

REACTIONS (1)
  - HAEMATOMA [None]
